FAERS Safety Report 6783370-9 (Version None)
Quarter: 2010Q2

REPORT INFORMATION
  Report Type: 
  Country: None (occurrence: None)
  Receive Date: 20100622
  Receipt Date: 20100614
  Transmission Date: 20101027
  Serious: Yes (Other)
  Sender: FDA-Public Use
  Company Number: US-SANOFI-AVENTIS-2010SA034421

PATIENT
  Age: 79 Year
  Sex: Male

DRUGS (11)
  1. MULTAQ [Suspect]
     Indication: ATRIAL FIBRILLATION
     Route: 048
     Dates: start: 20100601
  2. AMIODARONE [Suspect]
     Route: 065
     Dates: end: 20100601
  3. AVODART [Concomitant]
  4. CRESTOR [Concomitant]
  5. TAMSULOSIN HCL [Concomitant]
  6. HYDROCODONE [Concomitant]
  7. ZOLPIDEM [Concomitant]
  8. FEXOFENADINE [Concomitant]
  9. LEVOTHYROXINE SODIUM [Concomitant]
  10. LASIX [Concomitant]
  11. COUMADIN [Concomitant]

REACTIONS (4)
  - DIZZINESS [None]
  - ORTHOSTATIC HYPOTENSION [None]
  - SYNCOPE [None]
  - TREMOR [None]
